FAERS Safety Report 8024828-4 (Version None)
Quarter: 2012Q1

REPORT INFORMATION
  Report Type: 
  Country: None (occurrence: None)
  Receive Date: 20120105
  Receipt Date: 20120103
  Transmission Date: 20120608
  Serious: No
  Sender: FDA-Public Use
  Company Number: US-ELI_LILLY_AND_COMPANY-US201201000844

PATIENT
  Sex: Female

DRUGS (1)
  1. CIALIS [Suspect]
     Indication: PULMONARY HYPERTENSION
     Dosage: 40 MG, UNKNOWN

REACTIONS (2)
  - OFF LABEL USE [None]
  - CHROMATOPSIA [None]
